FAERS Safety Report 17546008 (Version 1)
Quarter: 2020Q1

REPORT INFORMATION
  Report Type: Spontaneous
  Country: US (occurrence: US)
  Receive Date: 20200307
  Receipt Date: 20200307
  Transmission Date: 20200409
  Serious: Yes (Death, Hospitalization)
  Sender: FDA-Public Use
  Company Number: None

PATIENT
  Sex: Male
  Weight: 113.9 kg

DRUGS (2)
  1. CARBOPLATIN. [Suspect]
     Active Substance: CARBOPLATIN
  2. TAXOL [Suspect]
     Active Substance: PACLITAXEL

REACTIONS (5)
  - Metabolic acidosis [None]
  - Thrombosis [None]
  - Loss of consciousness [None]
  - Haemoglobin decreased [None]
  - Acute kidney injury [None]

NARRATIVE: CASE EVENT DATE: 20191221
